FAERS Safety Report 6971875-7 (Version None)
Quarter: 2010Q3

REPORT INFORMATION
  Report Type: 
  Country: None (occurrence: None)
  Receive Date: 20100908
  Receipt Date: 20100908
  Transmission Date: 20110219
  Serious: No
  Sender: FDA-Public Use
  Company Number: None

PATIENT
  Age: 86 Year
  Sex: Male
  Weight: 87 kg

DRUGS (1)
  1. FEBUXOSTAT [Suspect]
     Indication: GOUT
     Dosage: 40 MG EVERY DAY PO
     Route: 048
     Dates: start: 20100520, end: 20100628

REACTIONS (3)
  - ABDOMINAL PAIN [None]
  - CHROMATURIA [None]
  - DIZZINESS [None]
